FAERS Safety Report 8476333-9 (Version None)
Quarter: 2012Q2

REPORT INFORMATION
  Report Type: 
  Country: None (occurrence: None)
  Receive Date: 20120619
  Receipt Date: 20120614
  Transmission Date: 20120825
  Serious: Yes (Other)
  Sender: FDA-Public Use
  Company Number: 2011SP020936

PATIENT
  Age: 51 Year
  Sex: Male
  Weight: 140 kg

DRUGS (8)
  1. TEMOZOLOMIDE [Suspect]
     Indication: PRODUCT USED FOR UNKNOWN INDICATION
     Dosage: 380 MG;PO
     Route: 048
     Dates: start: 20110217, end: 20110504
  2. ACETYLCYSTEINE [Concomitant]
  3. DEXAMETHASONE SODIUM PHOSPHATE [Concomitant]
  4. BEROTEC [Concomitant]
  5. PULMICORT [Concomitant]
  6. COTRIM DS [Concomitant]
  7. ALBUTEROL SULATE [Concomitant]
  8. FORADIL [Concomitant]

REACTIONS (4)
  - CONDITION AGGRAVATED [None]
  - LYMPHOPENIA [None]
  - BRONCHITIS [None]
  - CHRONIC OBSTRUCTIVE PULMONARY DISEASE [None]
